FAERS Safety Report 8512017-6 (Version None)
Quarter: 2012Q2

REPORT INFORMATION
  Report Type: 
  Country: None (occurrence: None)
  Receive Date: 20120406
  Receipt Date: 20100329
  Transmission Date: 20120825
  Serious: Yes (Hospitalization, Other)
  Sender: FDA-Public Use
  Company Number: PHHY2010US15611

PATIENT
  Age: 77 Year
  Sex: Male
  Weight: 64.4 kg

DRUGS (10)
  1. ANTIARRHYTHMICS, CLASS I AND III (NO INGREDIENTS/SUBSTANCES) [Concomitant]
  2. PROCRIT [Concomitant]
  3. TASIGNA [Suspect]
     Indication: CHRONIC MYELOID LEUKAEMIA
     Dosage: 400 MG, BID ; 300 MG, BID
     Dates: start: 20090704, end: 20090728
  4. ZANTAC [Concomitant]
  5. AMIODARONE HCL [Suspect]
     Indication: ARRHYTHMIA
     Dates: start: 20060101, end: 20090701
  6. SYNTHROID [Concomitant]
  7. IRON (IRON) [Concomitant]
  8. LASIX [Concomitant]
  9. DIGOXIN [Concomitant]
  10. ASPIRIN [Concomitant]

REACTIONS (4)
  - CARDIAC FAILURE CONGESTIVE [None]
  - DECREASED APPETITE [None]
  - WEIGHT DECREASED [None]
  - ELECTROCARDIOGRAM QRS COMPLEX PROLONGED [None]
